FAERS Safety Report 7929924-5 (Version None)
Quarter: 2011Q4

REPORT INFORMATION
  Report Type: 
  Country: None (occurrence: None)
  Receive Date: 20111121
  Receipt Date: 20111114
  Transmission Date: 20120403
  Serious: Yes (Other)
  Sender: FDA-Public Use
  Company Number: FR-PFIZER INC-2011247960

PATIENT
  Age: 62 Year
  Sex: Female
  Weight: 63 kg

DRUGS (2)
  1. CRIZOTINIB [Suspect]
     Dosage: 250 MG, 1X/DAY
     Dates: start: 20111014
  2. CRIZOTINIB [Suspect]
     Dosage: 250 MG, 2X/DAY
     Route: 048
     Dates: start: 20111005

REACTIONS (3)
  - VITREOUS FLOATERS [None]
  - VITREOUS DETACHMENT [None]
  - VISUAL ACUITY REDUCED [None]
